FAERS Safety Report 4635110-7 (Version None)
Quarter: 2005Q2

REPORT INFORMATION
  Report Type: 
  Country: None (occurrence: None)
  Receive Date: 20050414
  Receipt Date: 20050317
  Transmission Date: 20051028
  Serious: Yes (Life-Threatening, Hospitalization)
  Sender: FDA-Public Use
  Company Number: US-MERCK-0503USA03036

PATIENT
  Age: 60 Year
  Sex: Female
  Weight: 68 kg

DRUGS (6)
  1. VIOXX [Suspect]
     Indication: ARTHRALGIA
     Route: 048
     Dates: start: 20010101, end: 20030101
  2. VIOXX [Suspect]
     Route: 048
     Dates: start: 20020101
  3. TENORMIN [Concomitant]
     Route: 065
  4. COUMADIN [Concomitant]
     Route: 065
  5. VICODIN [Concomitant]
     Route: 065
  6. ZYRTEC [Concomitant]
     Route: 065

REACTIONS (1)
  - INTRACRANIAL ANEURYSM [None]
